FAERS Safety Report 6012661-4 (Version None)
Quarter: 2008Q4

REPORT INFORMATION
  Report Type: 
  Country: None (occurrence: None)
  Receive Date: 20081217
  Receipt Date: 20081111
  Transmission Date: 20090506
  Serious: Yes (Disabling)
  Sender: FDA-Public Use
  Company Number: ADR2942008

PATIENT
  Age: 46 Year
  Sex: Female

DRUGS (4)
  1. ALENDRONAT      (ALENDRONATE) TABLETS 70 MG [Suspect]
     Indication: OSTEOPOROSIS
     Dosage: 70 MG WEEKLY; 1 DOSE
     Dates: start: 20081012
  2. CISPLATIN [Concomitant]
  3. BETOLVEX (VITAMIN B12) [Concomitant]
  4. CAVID (CALCIUM + VITAMIN D) [Concomitant]

REACTIONS (3)
  - ARTHRALGIA [None]
  - JOINT LOCK [None]
  - PAIN IN EXTREMITY [None]
